FAERS Safety Report 5469364-4 (Version None)
Quarter: 2007Q3

REPORT INFORMATION
  Report Type: 
  Country: None (occurrence: None)
  Receive Date: 20070927
  Receipt Date: 20070919
  Transmission Date: 20080115
  Serious: Yes (Other)
  Sender: FDA-Public Use
  Company Number: FR-ELI_LILLY_AND_COMPANY-FR200601003566

PATIENT
  Age: 78 Year
  Sex: Female

DRUGS (8)
  1. FORTEO [Suspect]
     Indication: OSTEOPOROSIS
     Dosage: 20 UG, DAILY (1/D)
     Route: 058
     Dates: start: 20070912
  2. FORTEO [Suspect]
     Dosage: 20 UG, DAILY (1/D)
     Route: 058
     Dates: start: 20060103, end: 20060311
  3. FORTEO [Suspect]
     Dosage: 20 UG, DAILY (1/D)
     Route: 058
     Dates: start: 20060319, end: 20060324
  4. FLUVOXAMINE MALEATE [Concomitant]
     Indication: DEPRESSION
     Dosage: 500 MG, 2/D
     Route: 048
     Dates: start: 19960118
  5. METOPROLOL TARTRATE [Concomitant]
     Indication: PALPITATIONS
     Dosage: 0.5 D/F, EACH MORNING
     Route: 048
     Dates: start: 19960118
  6. MEPRONIZINE [Concomitant]
     Indication: SLEEP DISORDER
     Dosage: 1 D/F, EACH EVENING
     Route: 048
     Dates: start: 19960118
  7. XANAX [Concomitant]
     Indication: ANXIETY
     Dosage: 50 MG, 3/D
     Route: 048
     Dates: start: 20060124
  8. ACETAMINOPHEN [Concomitant]
     Indication: PAIN
     Dosage: 6 D/F, DAILY (1/D)
     Route: 048
     Dates: start: 19960101

REACTIONS (14)
  - ABDOMINAL PAIN [None]
  - DEPRESSED MOOD [None]
  - DYSPEPSIA [None]
  - DYSPNOEA [None]
  - FATIGUE [None]
  - HEADACHE [None]
  - HYPERHIDROSIS [None]
  - MALAISE [None]
  - MICTURITION URGENCY [None]
  - OESOPHAGEAL OEDEMA [None]
  - PALPITATIONS [None]
  - SWOLLEN TONGUE [None]
  - TACHYCARDIA [None]
  - VERTIGO [None]
